FAERS Safety Report 9896339 (Version 3)
Quarter: 2016Q2

REPORT INFORMATION
  Report Type: Spontaneous
  Country: GR (occurrence: GR)
  Receive Date: 20140213
  Receipt Date: 20160629
  Transmission Date: 20160815
  Serious: Yes (Other)
  Sender: FDA-Public Use
  Company Number: GR-MERCK-1402GRC005471

PATIENT
  Age: 59 Year
  Sex: Female
  Weight: 122 kg

DRUGS (4)
  1. T4 [Concomitant]
     Active Substance: LEVOTHYROXINE
     Dosage: FOR MORE THAN 20 YEARS
  2. JANUVIA [Suspect]
     Active Substance: SITAGLIPTIN PHOSPHATE
     Indication: TYPE 2 DIABETES MELLITUS
     Dosage: 1 TABLET DAILY AT NOON
     Route: 048
     Dates: start: 2011
  3. GLUCOPHAGE [Suspect]
     Active Substance: METFORMIN HYDROCHLORIDE
     Indication: TYPE 2 DIABETES MELLITUS
     Dosage: 1 TABLET 850 MG PER OS AT MORNING AND AT NIGHT
     Route: 048
     Dates: start: 2011, end: 201401
  4. NORVASC [Concomitant]
     Active Substance: AMLODIPINE BESYLATE
     Dosage: 1 TABLET AT NIGHT

REACTIONS (4)
  - Hypoglycaemia [Recovered/Resolved]
  - Pruritus [Recovered/Resolved]
  - Skin disorder [Recovered/Resolved]
  - Skin wound [Recovered/Resolved]

NARRATIVE: CASE EVENT DATE: 2011
